FAERS Safety Report 18859295 (Version 1)
Quarter: 2021Q1

REPORT INFORMATION
  Report Type: Spontaneous
  Country: US (occurrence: US)
  Receive Date: 20210208
  Receipt Date: 20210208
  Transmission Date: 20210420
  Serious: Yes (Other)
  Sender: FDA-Public Use
  Company Number: None

PATIENT
  Age: 42 Year
  Sex: Female
  Weight: 102.3 kg

DRUGS (1)
  1. BAMLANIVIMAB INJECTION [Suspect]
     Active Substance: BAMLANIVIMAB
     Indication: COVID-19
     Dosage: ?          OTHER FREQUENCY:ONCE;?
     Route: 040
     Dates: start: 20210202, end: 20210202

REACTIONS (1)
  - Atypical pneumonia [None]

NARRATIVE: CASE EVENT DATE: 20210202
